FAERS Safety Report 4834052-1 (Version None)
Quarter: 2005Q4

REPORT INFORMATION
  Report Type: 
  Country: None (occurrence: None)
  Receive Date: 20051122
  Receipt Date: 20051108
  Transmission Date: 20060501
  Serious: Yes (Death)
  Sender: FDA-Public Use
  Company Number: CN-KINGPHARMUSA00001-K200501467

PATIENT

DRUGS (1)
  1. KETALAR [Suspect]
     Dates: start: 20010101, end: 20010101

REACTIONS (1)
  - ROAD TRAFFIC ACCIDENT [None]
